FAERS Safety Report 15001188 (Version 1)
Quarter: 2018Q2

REPORT INFORMATION
  Report Type: Spontaneous
  Country: US (occurrence: US)
  Receive Date: 20180521
  Receipt Date: 20180521
  Transmission Date: 20180711
  Serious: Yes (Hospitalization)
  Sender: FDA-Public Use
  Company Number: None

PATIENT
  Age: 70 Year
  Sex: Female

DRUGS (1)
  1. DOXORUBICIN INJ 2MG/ML [Suspect]
     Active Substance: DOXORUBICIN
     Route: 042

REACTIONS (3)
  - Pneumonia [None]
  - Therapy change [None]
  - Mouth ulceration [None]

NARRATIVE: CASE EVENT DATE: 20180416
